FAERS Safety Report 15896400 (Version 3)
Quarter: 2019Q2

REPORT INFORMATION
  Report Type: Spontaneous
  Country: US (occurrence: US)
  Receive Date: 20190131
  Receipt Date: 20190416
  Transmission Date: 20190711
  Serious: Yes (Other)
  Sender: FDA-Public Use
  Company Number: PHEH2019US004081

PATIENT
  Age: 54 Year
  Sex: Female

DRUGS (1)
  1. DUREZOL [Suspect]
     Active Substance: DIFLUPREDNATE
     Indication: EPISCLERITIS
     Dosage: 1 GTT, TID
     Route: 047
     Dates: start: 20171031, end: 20190118

REACTIONS (5)
  - Product use issue [Unknown]
  - Vision blurred [Unknown]
  - Cataract [Unknown]
  - Glaucoma [Unknown]
  - Visual impairment [Unknown]

NARRATIVE: CASE EVENT DATE: 201811
